FAERS Safety Report 8921182 (Version 2)
Quarter: 2013Q1

REPORT INFORMATION
  Report Type: Report from Study
  Country: US (occurrence: US)
  Receive Date: 20121121
  Receipt Date: 20130131
  Transmission Date: 20140127
  Serious: Yes (Hospitalization)
  Sender: FDA-Public Use
  Company Number: US-VERTEX PHARMACEUTICAL INC.-2012-024709

PATIENT
  Age: 47 Year
  Sex: Male
  Weight: 95.4 kg

DRUGS (3)
  1. VX-950 (TELAPREVIR) [Suspect]
     Indication: HEPATITIS C
     Dosage: 1125 MG, BID
     Route: 048
     Dates: start: 20120913, end: 20121115
  2. Z-PEGYLATED INTERFERON-2A [Suspect]
     Indication: HEPATITIS C
     Dosage: 180 ?G, UNK
     Route: 058
     Dates: start: 20120913, end: 20121115
  3. Z-RIBAVIRIN [Suspect]
     Indication: HEPATITIS C
     Dosage: 600 MG, BID
     Route: 048
     Dates: start: 20120913, end: 20121115

REACTIONS (1)
  - Rash [Not Recovered/Not Resolved]
